FAERS Safety Report 4821357-3 (Version None)
Quarter: 2005Q4

REPORT INFORMATION
  Report Type: 
  Country: None (occurrence: None)
  Receive Date: 20051107
  Receipt Date: 20051004
  Transmission Date: 20060501
  Serious: No
  Sender: FDA-Public Use
  Company Number: US-GLAXOSMITHKLINE-A0576991A

PATIENT
  Age: 51 Year
  Sex: Male

DRUGS (2)
  1. AVANDAMET [Suspect]
     Route: 048
     Dates: start: 20050928, end: 20051001
  2. ANTIBIOTIC-UNKNOWN [Concomitant]

REACTIONS (4)
  - FEELING HOT AND COLD [None]
  - HEADACHE [None]
  - MALAISE [None]
  - NAUSEA [None]
